FAERS Safety Report 7284208-6 (Version None)
Quarter: 2011Q1

REPORT INFORMATION
  Report Type: 
  Country: None (occurrence: None)
  Receive Date: 20110209
  Receipt Date: 20110203
  Transmission Date: 20110831
  Serious: No
  Sender: FDA-Public Use
  Company Number: US-PFIZER INC-2007098235

PATIENT
  Sex: Female
  Weight: 81.65 kg

DRUGS (6)
  1. SERTRALINE HYDROCHLORIDE [Suspect]
     Indication: DEPRESSION
     Dosage: 50 MG, UNK
     Route: 048
  2. TRICOR [Concomitant]
     Dosage: 48 MG, UNK
  3. UNIRETIC [Concomitant]
     Dosage: 15/25MG
  4. AMITRIPTYLINE [Concomitant]
  5. CLARITIN [Concomitant]
  6. BUSPAR [Concomitant]
     Dosage: 15 MG, UNK

REACTIONS (4)
  - NERVOUSNESS [None]
  - PARAESTHESIA [None]
  - MALAISE [None]
  - ABDOMINAL DISCOMFORT [None]
